FAERS Safety Report 9565214 (Version 1)
Quarter: 2013Q3

REPORT INFORMATION
  Report Type: Spontaneous
  Country: US (occurrence: US)
  Receive Date: 20130930
  Receipt Date: 20130930
  Transmission Date: 20140515
  Serious: No
  Sender: FDA-Public Use
  Company Number: US-VIIV HEALTHCARE LIMITED-A0993872A

PATIENT
  Age: 65 Year
  Sex: Male
  Weight: 81.8 kg

DRUGS (2)
  1. EPZICOM [Suspect]
     Indication: HIV INFECTION
     Dosage: 300MG PER DAY
     Route: 065
     Dates: end: 2012
  2. CHANTIX [Suspect]
     Indication: SMOKING CESSATION THERAPY
     Dosage: .5MG PER DAY
     Route: 065
     Dates: start: 2012

REACTIONS (1)
  - Renal impairment [Unknown]
